FAERS Safety Report 12088140 (Version 1)
Quarter: 2016Q1

REPORT INFORMATION
  Report Type: Spontaneous
  Country: PE (occurrence: None)
  Receive Date: 20160216
  Receipt Date: 20160216
  Transmission Date: 20160526
  Serious: Yes (Life-Threatening, Hospitalization, Disabling, Other)
  Sender: FDA-Public Use
  Company Number: None

PATIENT
  Age: 12 Year
  Sex: Female
  Weight: 48 kg

DRUGS (1)
  1. MINOCYCLINE (BAGOMICINA) LABORATORIOS BAGO [Suspect]
     Active Substance: MINOCYCLINE\MINOCYCLINE HYDROCHLORIDE
     Indication: ACNE
     Dosage: 1 PILL ONCE DAILY TAKEN BY MOUTH
     Route: 048

REACTIONS (15)
  - Hiccups [None]
  - Alopecia [None]
  - Pain [None]
  - Lymphoma [None]
  - Sinusitis [None]
  - Leukaemia [None]
  - Fungal skin infection [None]
  - Tachycardia [None]
  - Asthenia [None]
  - Tremor [None]
  - Hyperthyroidism [None]
  - Seizure [None]
  - Eczema [None]
  - Onychomadesis [None]
  - Weight decreased [None]

NARRATIVE: CASE EVENT DATE: 20150208
